FAERS Safety Report 6206790-X (Version None)
Quarter: 2009Q2

REPORT INFORMATION
  Report Type: 
  Country: None (occurrence: None)
  Receive Date: 20090528
  Receipt Date: 20090520
  Transmission Date: 20091009
  Serious: Yes (Hospitalization, Other)
  Sender: FDA-Public Use
  Company Number: US-B.I. PHARMACEUTICALS,INC./RIDGEFIELD-2009-BP-05879BP

PATIENT
  Age: 82 Year
  Sex: Male
  Weight: 63.84 kg

DRUGS (8)
  1. FLOMAX [Suspect]
     Indication: POLLAKIURIA
     Dosage: .4MG
     Route: 048
     Dates: start: 20081016, end: 20081016
  2. FLOMAX [Suspect]
     Indication: MICTURITION URGENCY
  3. BENICAR HCT [Concomitant]
  4. CRESTOR [Concomitant]
  5. TAGAMET [Concomitant]
  6. CARTIA XT [Concomitant]
  7. IMDUR [Concomitant]
  8. ASPIRIN [Concomitant]

REACTIONS (3)
  - FALL [None]
  - HYPOTENSION [None]
  - SYNCOPE [None]
